FAERS Safety Report 6172956-0 (Version None)
Quarter: 2009Q2

REPORT INFORMATION
  Report Type: 
  Country: None (occurrence: None)
  Receive Date: 20090430
  Receipt Date: 20090424
  Transmission Date: 20091009
  Serious: Yes (Death, Other)
  Sender: FDA-Public Use
  Company Number: US-CELGENEUS-163-20785-09030634

PATIENT
  Sex: Male

DRUGS (3)
  1. THALOMID [Suspect]
     Indication: MULTIPLE MYELOMA
     Route: 048
     Dates: start: 20081101, end: 20081201
  2. THALOMID [Suspect]
     Route: 048
     Dates: start: 20081001, end: 20081001
  3. THALOMID [Suspect]
     Route: 048
     Dates: start: 20080501, end: 20081001

REACTIONS (3)
  - HYPERCALCAEMIA [None]
  - HYPERCOAGULATION [None]
  - MULTIPLE MYELOMA [None]
